FAERS Safety Report 20154055 (Version 2)
Quarter: 2021Q4

REPORT INFORMATION
  Report Type: Spontaneous
  Country: US (occurrence: US)
  Receive Date: 20211207
  Receipt Date: 20211210
  Transmission Date: 20220303
  Serious: Yes (Life-Threatening, Hospitalization, Disabling, Other)
  Sender: FDA-Public Use
  Company Number: US-009507513-2112USA000602

PATIENT
  Age: 45 Year
  Sex: Female

DRUGS (2)
  1. BRIDION [Suspect]
     Active Substance: SUGAMMADEX
     Indication: Neuromuscular blockade reversal
     Dosage: 1 DOSAGE FORM
     Route: 042
     Dates: start: 202107
  2. BRIDION [Suspect]
     Active Substance: SUGAMMADEX
     Dosage: 1 DOSAGE FORM
     Route: 042
     Dates: start: 202107

REACTIONS (6)
  - Brain injury [Not Recovered/Not Resolved]
  - Bradycardia [Not Recovered/Not Resolved]
  - Circulatory collapse [Unknown]
  - Thrombosis [Unknown]
  - Drug ineffective [Unknown]
  - Extra dose administered [Unknown]

NARRATIVE: CASE EVENT DATE: 20210701
